FAERS Safety Report 22802238 (Version 4)
Quarter: 2025Q1

REPORT INFORMATION
  Report Type: Spontaneous
  Country: US (occurrence: US)
  Receive Date: 20230809
  Receipt Date: 20250207
  Transmission Date: 20250409
  Serious: No
  Sender: LUPIN
  Company Number: US-LUPIN PHARMACEUTICALS INC.-2023-06505

PATIENT

DRUGS (1)
  1. ALBUTEROL SULFATE [Suspect]
     Active Substance: ALBUTEROL SULFATE
     Indication: Asthma
     Dosage: UNK, QD (8-10 PUFFS)
     Dates: start: 20230712

REACTIONS (3)
  - Dyspnoea [Unknown]
  - Drug dose omission by device [Unknown]
  - Device delivery system issue [Unknown]
